FAERS Safety Report 6785153-2 (Version None)
Quarter: 2010Q2

REPORT INFORMATION
  Report Type: 
  Country: None (occurrence: None)
  Receive Date: 20100618
  Receipt Date: 20100610
  Transmission Date: 20101027
  Serious: Yes (Hospitalization)
  Sender: FDA-Public Use
  Company Number: 010059

PATIENT

DRUGS (1)
  1. PLETAL [Suspect]
     Dosage: UNK, UNK; ORAL
     Route: 048

REACTIONS (2)
  - DIZZINESS [None]
  - SOMNOLENCE [None]
